FAERS Safety Report 17030648 (Version 1)
Quarter: 2019Q4

REPORT INFORMATION
  Report Type: Spontaneous
  Country: GB (occurrence: GB)
  Receive Date: 20191114
  Receipt Date: 20191114
  Transmission Date: 20200122
  Serious: Yes (Other)
  Sender: FDA-Public Use
  Company Number: GB-JNJFOC-20191109495

PATIENT
  Age: 56 Year
  Sex: Male

DRUGS (3)
  1. RIVAROXABAN [Suspect]
     Active Substance: RIVAROXABAN
     Dosage: 20 MG, QD
     Route: 048
  2. RIVAROXABAN [Suspect]
     Active Substance: RIVAROXABAN
     Dosage: 10 MG, QD
     Route: 048
     Dates: start: 2019
  3. RIVAROXABAN [Suspect]
     Active Substance: RIVAROXABAN
     Indication: PRODUCT USED FOR UNKNOWN INDICATION
     Dosage: UNK
     Route: 048

REACTIONS (1)
  - Spondylitis [Unknown]

NARRATIVE: CASE EVENT DATE: 2019
